FAERS Safety Report 9798567 (Version 2)
Quarter: 2014Q1

REPORT INFORMATION
  Report Type: Spontaneous
  Country: ES (occurrence: None)
  Receive Date: 20131231
  Receipt Date: 20140107
  Transmission Date: 20141002
  Serious: Yes (Other)
  Sender: FDA-Public Use
  Company Number: AUR-APL-2013-10817

PATIENT
  Age: 16 Year
  Sex: Male

DRUGS (6)
  1. LEVOFLOXACIN [Suspect]
     Indication: STAPHYLOCOCCAL INFECTION
     Dosage: UNKNOWN
  2. AMOXICILLIN [Suspect]
     Indication: INFECTIOUS MONONUCLEOSIS
     Dosage: UNKNOWN
  3. IBUPROFEN [Suspect]
     Indication: PRODUCT USED FOR UNKNOWN INDICATION
     Dosage: UNKNOWN
  4. PARACETAMOL [Suspect]
     Indication: INFECTIOUS MONONUCLEOSIS
     Dosage: UNKNOWN
  5. METAMIZOLE [Suspect]
     Indication: STAPHYLOCOCCAL BACTERAEMIA
     Dosage: UNKNOWN
  6. CLOXACILLIN [Suspect]
     Indication: STAPHYLOCOCCAL BACTERAEMIA
     Dosage: UNKNOWN

REACTIONS (4)
  - Rash generalised [None]
  - Rash pruritic [None]
  - Rash macular [None]
  - Skin test positive [None]
